FAERS Safety Report 8610682-6 (Version None)
Quarter: 2012Q3

REPORT INFORMATION
  Report Type: 
  Country: None (occurrence: None)
  Receive Date: 20120808
  Receipt Date: 20120730
  Transmission Date: 20120928
  Serious: Yes (Death, Hospitalization)
  Sender: FDA-Public Use
  Company Number: AUR-APL-2012-03392

PATIENT
  Age: 65 Year
  Sex: Male

DRUGS (4)
  1. LEVETIRACETAM [Suspect]
     Indication: PRODUCT USED FOR UNKNOWN INDICATION
  2. MISTLETOE (VISCUM ALBUM) [Suspect]
     Indication: SMALL CELL LUNG CANCER METASTATIC
     Dosage: (1 IN 3 D), UNKNOWN
  3. VALPROIC ACID [Suspect]
  4. ASCORBIC ACID [Suspect]
     Indication: SMALL CELL LUNG CANCER METASTATIC
     Dosage: (2 IN 1 WK), UNKNOWN

REACTIONS (7)
  - OEDEMA [None]
  - FATIGUE [None]
  - CONVULSIVE THRESHOLD LOWERED [None]
  - CONVULSION [None]
  - CONFUSIONAL STATE [None]
  - CEREBRAL HAEMORRHAGE [None]
  - HEMIPARESIS [None]
